FAERS Safety Report 7272268-8 (Version None)
Quarter: 2011Q1

REPORT INFORMATION
  Report Type: 
  Country: None (occurrence: None)
  Receive Date: 20110203
  Receipt Date: 20110119
  Transmission Date: 20110831
  Serious: Yes (Hospitalization, Disabling)
  Sender: FDA-Public Use
  Company Number: FR-CELGENEUS-056-21880-10030715

PATIENT
  Sex: Female
  Weight: 80 kg

DRUGS (6)
  1. REVLIMID [Suspect]
     Route: 048
     Dates: start: 20100224, end: 20100228
  2. DEXAMETHASONE [Suspect]
     Route: 048
  3. LOXEN [Suspect]
     Route: 048
  4. REVLIMID [Suspect]
     Route: 048
     Dates: start: 20100304
  5. LASIX [Suspect]
     Route: 048
  6. LOXEN [Suspect]
     Route: 048
     Dates: start: 20100228

REACTIONS (2)
  - GENERAL PHYSICAL HEALTH DETERIORATION [None]
  - FALL [None]
